FAERS Safety Report 6491970-9 (Version None)
Quarter: 2009Q4

REPORT INFORMATION
  Report Type: 
  Country: None (occurrence: None)
  Receive Date: 20091208
  Receipt Date: 20091126
  Transmission Date: 20100525
  Serious: Yes (Hospitalization)
  Sender: FDA-Public Use
  Company Number: 002551

PATIENT

DRUGS (7)
  1. NEUPRO [Suspect]
     Dosage: (2 MG QD TRANSDERMAL), (4 MG QD TRANSDERMAL), (6 MG QD TRANSDERMAL), (8 MG QD TRANSDERMAL)
     Route: 062
     Dates: start: 20090121, end: 20090401
  2. NEUPRO [Suspect]
     Dosage: (2 MG QD TRANSDERMAL), (4 MG QD TRANSDERMAL), (6 MG QD TRANSDERMAL), (8 MG QD TRANSDERMAL)
     Route: 062
     Dates: start: 20090402, end: 20091007
  3. NEUPRO [Suspect]
     Dosage: (2 MG QD TRANSDERMAL), (4 MG QD TRANSDERMAL), (6 MG QD TRANSDERMAL), (8 MG QD TRANSDERMAL)
     Route: 062
     Dates: start: 20091008, end: 20091028
  4. NEUPRO [Suspect]
     Dosage: (2 MG QD TRANSDERMAL), (4 MG QD TRANSDERMAL), (6 MG QD TRANSDERMAL), (8 MG QD TRANSDERMAL)
     Route: 062
     Dates: start: 20091029
  5. LEVODOPA COMP B (LEVODOPA COMP B) (NOT SPECIFIED) [Suspect]
     Dosage: (50/125 MG THREE TIMES DAILY), 100/25 MG THREE TIMES DAILY), 100/25 MG FOUR TIMES DAILY)
     Dates: start: 20080424, end: 20080521
  6. LEVODOPA COMP B (LEVODOPA COMP B) (NOT SPECIFIED) [Suspect]
     Dosage: (50/125 MG THREE TIMES DAILY), 100/25 MG THREE TIMES DAILY), 100/25 MG FOUR TIMES DAILY)
     Dates: start: 20080522, end: 20091111
  7. LEVODOPA COMP B (LEVODOPA COMP B) (NOT SPECIFIED) [Suspect]
     Dosage: (50/125 MG THREE TIMES DAILY), 100/25 MG THREE TIMES DAILY), 100/25 MG FOUR TIMES DAILY)
     Dates: start: 20091112

REACTIONS (1)
  - HOSPITALISATION [None]
